FAERS Safety Report 20753653 (Version 1)
Quarter: 2022Q2

REPORT INFORMATION
  Report Type: Spontaneous
  Country: US (occurrence: None)
  Receive Date: 20220426
  Receipt Date: 20220426
  Transmission Date: 20220721
  Serious: No
  Sender: FDA-Public Use
  Company Number: US-ROCHE-2813723

PATIENT
  Age: 72 Year
  Sex: Female

DRUGS (4)
  1. ESBRIET [Suspect]
     Active Substance: PIRFENIDONE
     Indication: Idiopathic pulmonary fibrosis
     Route: 065
     Dates: start: 20200717
  2. PREDNISONE [Concomitant]
     Active Substance: PREDNISONE
  3. OXYGEN [Concomitant]
     Active Substance: OXYGEN
  4. COVID-19 VACCINE [Concomitant]

REACTIONS (1)
  - Flatulence [Unknown]
